FAERS Safety Report 5042755-1 (Version None)
Quarter: 2006Q2

REPORT INFORMATION
  Report Type: 
  Country: None (occurrence: None)
  Receive Date: 20060627
  Receipt Date: 20060614
  Transmission Date: 20061013
  Serious: Yes (Hospitalization, Other)
  Sender: FDA-Public Use
  Company Number: 2005164336

PATIENT
  Age: 22 Year
  Sex: Female
  Weight: 67.2 kg

DRUGS (10)
  1. VIAGRA [Suspect]
     Indication: PULMONARY HYPERTENSION
     Dosage: 12.5 MG (1 IN 1 D), ORAL
     Route: 048
     Dates: start: 20030912
  2. WARFARIN SODIUM [Concomitant]
  3. BERAPROST SODIUM (BERAPROST SODIUM) [Concomitant]
  4. OXYGEN (OXYGEN) [Concomitant]
  5. NIZATIDINE [Concomitant]
  6. ALDACTONE [Concomitant]
  7. LANIRAPID (METILDIGOXIN) [Concomitant]
  8. LANIRAPID (METILDIGOXIN) [Concomitant]
  9. LASIX [Concomitant]
  10. VERAPAMIL HYDROCHLORIDE [Concomitant]

REACTIONS (8)
  - ANAEMIA [None]
  - CARDIAC FAILURE [None]
  - CONDITION AGGRAVATED [None]
  - HEADACHE [None]
  - OEDEMA [None]
  - PULMONARY HYPERTENSION [None]
  - RIGHT VENTRICULAR FAILURE [None]
  - WEIGHT INCREASED [None]
